FAERS Safety Report 16716324 (Version 1)
Quarter: 2019Q3

REPORT INFORMATION
  Report Type: Spontaneous
  Country: PT (occurrence: PT)
  Receive Date: 20190819
  Receipt Date: 20190819
  Transmission Date: 20191005
  Serious: Yes (Hospitalization, Disabling)
  Sender: FDA-Public Use
  Company Number: PT-BAUSCH-BL-2019-022616

PATIENT
  Age: 50 Year
  Sex: Female

DRUGS (8)
  1. BOSENTAN. [Suspect]
     Active Substance: BOSENTAN
     Indication: VASODILATION PROCEDURE
     Route: 048
  2. NIFEDIPINE. [Suspect]
     Active Substance: NIFEDIPINE
     Indication: VASODILATION PROCEDURE
     Route: 065
  3. NITROGLYCERIN. [Suspect]
     Active Substance: NITROGLYCERIN
     Indication: VASODILATION PROCEDURE
     Route: 065
  4. SILDENAFIL. [Suspect]
     Active Substance: SILDENAFIL
     Indication: PULMONARY ARTERIAL HYPERTENSION
     Route: 065
  5. SILDENAFIL. [Suspect]
     Active Substance: SILDENAFIL
     Indication: VASODILATION PROCEDURE
  6. VENTAVIS [Suspect]
     Active Substance: ILOPROST
     Indication: VASODILATION PROCEDURE
     Route: 065
  7. VENTAVIS [Suspect]
     Active Substance: ILOPROST
     Indication: PULMONARY FIBROSIS
  8. PENTOXIFYLLINE. [Suspect]
     Active Substance: PENTOXIFYLLINE
     Indication: VASODILATION PROCEDURE
     Route: 065

REACTIONS (2)
  - Finger amputation [Unknown]
  - Pneumonia [Unknown]
